FAERS Safety Report 4399235-6 (Version None)
Quarter: 2004Q3

REPORT INFORMATION
  Report Type: 
  Country: None (occurrence: None)
  Receive Date: 20040712
  Receipt Date: 20040625
  Transmission Date: 20050211
  Serious: Yes (Death, Hospitalization)
  Sender: FDA-Public Use
  Company Number: 702034

PATIENT
  Age: 85 Year
  Sex: Female

DRUGS (1)
  1. AMEVIVE [Suspect]
     Indication: PSORIASIS
     Dosage: 15 MG QW IM
     Route: 030
     Dates: start: 20031023, end: 20040115

REACTIONS (3)
  - GASTROINTESTINAL HAEMORRHAGE [None]
  - POST PROCEDURAL COMPLICATION [None]
  - STRESS ULCER [None]
